FAERS Safety Report 9674837 (Version 1)
Quarter: 2013Q4

REPORT INFORMATION
  Report Type: Spontaneous
  Country: US (occurrence: US)
  Receive Date: 20131107
  Receipt Date: 20131107
  Transmission Date: 20140711
  Serious: No
  Sender: FDA-Public Use
  Company Number: PHEH2013US022752

PATIENT
  Sex: Male

DRUGS (10)
  1. TASIGNA [Suspect]
     Dosage: 150 MG, UNK
     Route: 048
  2. TASIGNA [Suspect]
     Dosage: 200 MG, 4 TIMES WEEK
     Route: 048
  3. TASIGNA [Suspect]
     Dosage: 200 MG, THREE TIMES WEEK
     Route: 048
  4. TASIGNA [Suspect]
     Dosage: 200 MG, TWICE A WEEK
     Route: 048
  5. TASIGNA [Suspect]
     Dosage: 200 MG, 4 TIMES WEEK
     Route: 048
  6. LASIX [Concomitant]
  7. SPIRONOLACTONE [Concomitant]
  8. POTASSIUM CHLORIDE [Concomitant]
  9. PROAIR NASAL [Concomitant]
  10. DIPHENOXYLATE [Concomitant]

REACTIONS (3)
  - Red blood cell count decreased [Unknown]
  - Malaise [Unknown]
  - White blood cell count decreased [Unknown]
